FAERS Safety Report 24186408 (Version 1)
Quarter: 2024Q3

REPORT INFORMATION
  Report Type: Report from Study
  Country: US (occurrence: None)
  Receive Date: 20240808
  Receipt Date: 20240808
  Transmission Date: 20241017
  Serious: Yes (Other)
  Sender: ASTRAZENECA
  Company Number: 2023A113478

PATIENT
  Sex: Female

DRUGS (1)
  1. FARXIGA [Suspect]
     Active Substance: DAPAGLIFLOZIN PROPANEDIOL
     Route: 048

REACTIONS (6)
  - Immune thrombocytopenia [Unknown]
  - Arthritis [Unknown]
  - Cardiac disorder [Unknown]
  - Renal disorder [Unknown]
  - Lung disorder [Unknown]
  - Diabetes mellitus [Unknown]
